FAERS Safety Report 20483349 (Version 1)
Quarter: 2022Q1

REPORT INFORMATION
  Report Type: Spontaneous
  Country: CA (occurrence: CA)
  Receive Date: 20220217
  Receipt Date: 20220217
  Transmission Date: 20220423
  Serious: Yes (Other)
  Sender: FDA-Public Use
  Company Number: None

PATIENT
  Age: 39 Year
  Sex: Female

DRUGS (26)
  1. METHOTREXATE [Suspect]
     Active Substance: METHOTREXATE
     Indication: Rheumatoid arthritis
     Dosage: 1 EVERY 1 WEEKS
     Route: 058
  2. AMLODIPINE [Concomitant]
     Active Substance: AMLODIPINE BESYLATE
  3. ASPIRIN [Concomitant]
     Active Substance: ASPIRIN
  4. CLOPIDOGREL BISULFATE [Concomitant]
     Active Substance: CLOPIDOGREL BISULFATE
  5. CYANOCOBALAMIN [Concomitant]
     Active Substance: CYANOCOBALAMIN
  6. FAMOTIDINE [Concomitant]
     Active Substance: FAMOTIDINE
  7. FERROUS SULFATE [Concomitant]
     Active Substance: FERROUS SULFATE
  8. FOLIC ACID [Concomitant]
     Active Substance: FOLIC ACID
  9. GRAVOL [Concomitant]
     Active Substance: DIMENHYDRINATE
  10. HUMALOG [Concomitant]
     Active Substance: INSULIN LISPRO
  11. HUMIRA [Concomitant]
     Active Substance: ADALIMUMAB
     Dosage: SOLUTION SUBCUTANEOUS
  12. HYDROXYZINE [Concomitant]
     Active Substance: HYDROXYZINE HYDROCHLORIDE
  13. LASIX [Concomitant]
     Active Substance: FUROSEMIDE
  14. LORAZEPAM [Concomitant]
     Active Substance: LORAZEPAM
  15. METOPROLOL [Concomitant]
     Active Substance: METOPROLOL
  16. MODAFINIL [Concomitant]
     Active Substance: MODAFINIL
  17. MORPHINE [Concomitant]
     Active Substance: MORPHINE
  18. PANTOPRAZOLE SODIUM [Concomitant]
     Active Substance: PANTOPRAZOLE SODIUM
  19. POTASSIUM CHLORIDE [Concomitant]
     Active Substance: POTASSIUM CHLORIDE
  20. PREDNISONE [Concomitant]
     Active Substance: PREDNISONE
     Dosage: EVERY 1 DAYS
  21. ROSUVASTATIN CALCIUM [Concomitant]
     Active Substance: ROSUVASTATIN CALCIUM
  22. SERTRALINE [Concomitant]
     Active Substance: SERTRALINE HYDROCHLORIDE
  23. SYNTHROID [Concomitant]
     Active Substance: LEVOTHYROXINE SODIUM
  24. TEMAZEPAM [Concomitant]
     Active Substance: TEMAZEPAM
  25. TRANDATE [Concomitant]
     Active Substance: LABETALOL HYDROCHLORIDE
  26. VITAMIN D [Concomitant]
     Active Substance: VITAMIN D NOS

REACTIONS (10)
  - Arthralgia [Unknown]
  - Cystitis [Unknown]
  - Dysstasia [Unknown]
  - Joint range of motion decreased [Unknown]
  - Joint swelling [Unknown]
  - Movement disorder [Unknown]
  - Pain [Unknown]
  - Renal failure [Unknown]
  - Somnolence [Unknown]
  - Product use issue [Unknown]
